FAERS Safety Report 16137738 (Version 1)
Quarter: 2019Q1

REPORT INFORMATION
  Report Type: Report from Study
  Country: None (occurrence: US)
  Receive Date: 20190330
  Receipt Date: 20190330
  Transmission Date: 20190418
  Serious: Yes (Hospitalization, Other)
  Sender: FDA-Public Use
  Company Number: US-ABBVIE-18K-163-2578063-00

PATIENT
  Age: 69 Year
  Sex: Female
  Weight: 86.26 kg

DRUGS (4)
  1. CARAFATE [Concomitant]
     Active Substance: SUCRALFATE
     Indication: GASTROOESOPHAGEAL REFLUX DISEASE
  2. HUMIRA [Suspect]
     Active Substance: ADALIMUMAB
     Indication: RHEUMATOID ARTHRITIS
     Dosage: GREATER THAN 4 YEARS AGO
     Route: 058
  3. ZANTAC [Concomitant]
     Active Substance: RANITIDINE HYDROCHLORIDE
     Indication: GASTROOESOPHAGEAL REFLUX DISEASE
  4. PRILOSEC [Concomitant]
     Active Substance: OMEPRAZOLE MAGNESIUM
     Indication: GASTROOESOPHAGEAL REFLUX DISEASE

REACTIONS (22)
  - Joint dislocation [Recovered/Resolved]
  - Muscle spasms [Recovered/Resolved]
  - Peripheral nerve injury [Recovering/Resolving]
  - Back pain [Recovered/Resolved]
  - Lower limb fracture [Recovering/Resolving]
  - Fall [Recovered/Resolved]
  - Arthralgia [Recovering/Resolving]
  - Tibia fracture [Not Recovered/Not Resolved]
  - Post procedural complication [Recovering/Resolving]
  - Osteoporosis [Recovering/Resolving]
  - Fall [Recovered/Resolved]
  - Rheumatoid arthritis [Recovered/Resolved]
  - Erythema [Recovered/Resolved]
  - Fibula fracture [Not Recovered/Not Resolved]
  - Upper limb fracture [Recovered/Resolved]
  - Upper respiratory tract infection [Recovered/Resolved]
  - Asthma [Recovered/Resolved]
  - Fall [Recovered/Resolved]
  - Urinary tract infection [Not Recovered/Not Resolved]
  - Ligament sprain [Recovered/Resolved]
  - Patella fracture [Not Recovered/Not Resolved]
  - Dysgraphia [Recovering/Resolving]

NARRATIVE: CASE EVENT DATE: 2016
